FAERS Safety Report 23279318 (Version 1)
Quarter: 2023Q4

REPORT INFORMATION
  Report Type: Spontaneous
  Country: JP (occurrence: JP)
  Receive Date: 20231209
  Receipt Date: 20231209
  Transmission Date: 20240110
  Serious: Yes (Death, Hospitalization, Other)
  Sender: FDA-Public Use
  Company Number: JP-TAKEDA-2023TJP016097

PATIENT
  Age: 63 Year

DRUGS (8)
  1. NIVOLUMAB [Suspect]
     Active Substance: NIVOLUMAB
     Indication: Renal cancer metastatic
     Dosage: 240 MG, Q2WEEKS
  2. CABOMETYX [Suspect]
     Active Substance: CABOZANTINIB S-MALATE
     Indication: Renal cancer metastatic
     Dosage: 40 MG, QD
     Route: 048
  3. CABOMETYX [Suspect]
     Active Substance: CABOZANTINIB S-MALATE
     Dosage: 10 MG, QD
     Route: 048
  4. CABOMETYX [Suspect]
     Active Substance: CABOZANTINIB S-MALATE
     Dosage: 20 MG, QD
     Route: 048
  5. CABOMETYX [Suspect]
     Active Substance: CABOZANTINIB S-MALATE
     Dosage: 10 MG, QD
     Route: 048
  6. DECADRON [Concomitant]
     Active Substance: DEXAMETHASONE
     Dosage: 24 MG
  7. DECADRON [Concomitant]
     Active Substance: DEXAMETHASONE
     Dosage: 12 MG
  8. DECADRON [Concomitant]
     Active Substance: DEXAMETHASONE
     Dosage: 8 MG

REACTIONS (9)
  - Paralysis [Unknown]
  - Malignant pleural effusion [Unknown]
  - Interstitial lung disease [Unknown]
  - Back pain [Unknown]
  - Renal cancer metastatic [Fatal]
  - Skin erosion [Unknown]
  - Hepatic function abnormal [Unknown]
  - Hyponatraemia [Unknown]
  - Dehydration [Unknown]
